FAERS Safety Report 9668361 (Version 3)
Quarter: 2013Q4

REPORT INFORMATION
  Report Type: Spontaneous
  Country: CA (occurrence: CA)
  Receive Date: 20131104
  Receipt Date: 20131202
  Transmission Date: 20140711
  Serious: Yes (Other)
  Sender: FDA-Public Use
  Company Number: CA-PFIZER INC-2013305999

PATIENT
  Sex: Male

DRUGS (1)
  1. TOVIAZ [Suspect]
     Dosage: UNK

REACTIONS (2)
  - Cerebrovascular accident [Recovering/Resolving]
  - Dysphagia [Unknown]
